FAERS Safety Report 9133737 (Version 2)
Quarter: 2013Q1

REPORT INFORMATION
  Report Type: Spontaneous
  Country: CN (occurrence: CN)
  Receive Date: 20130303
  Receipt Date: 20130329
  Transmission Date: 20140127
  Serious: Yes (Hospitalization)
  Sender: FDA-Public Use
  Company Number: CN-US-EMD SERONO, INC.-7195352

PATIENT
  Age: 10 Year
  Sex: Female
  Weight: 22 kg

DRUGS (1)
  1. SAIZEN [Suspect]
     Indication: DWARFISM
     Route: 058
     Dates: start: 201206, end: 20130206

REACTIONS (1)
  - Epilepsy [Recovered/Resolved]
